FAERS Safety Report 16736491 (Version 1)
Quarter: 2019Q3

REPORT INFORMATION
  Report Type: Spontaneous
  Country: AU (occurrence: AU)
  Receive Date: 20190823
  Receipt Date: 20190823
  Transmission Date: 20191005
  Serious: Yes (Other)
  Sender: FDA-Public Use
  Company Number: AU-NALPROPION PHARMACEUTICALS INC.-2019-008277

PATIENT

DRUGS (1)
  1. CONTRAVE [Suspect]
     Active Substance: BUPROPION HYDROCHLORIDE\NALTREXONE HYDROCHLORIDE
     Indication: WEIGHT DECREASED
     Dosage: 1 TABLET IN THE MORNING
     Route: 065
     Dates: end: 20190812

REACTIONS (4)
  - Dizziness [Unknown]
  - Syncope [Unknown]
  - Hypoaesthesia [Unknown]
  - Gait disturbance [Unknown]
